FAERS Safety Report 12483903 (Version 1)
Quarter: 2016Q2

REPORT INFORMATION
  Report Type: Spontaneous
  Country: US (occurrence: None)
  Receive Date: 20160620
  Receipt Date: 20160620
  Transmission Date: 20160815
  Serious: Yes (Hospitalization)
  Sender: FDA-Public Use
  Company Number: None

PATIENT
  Age: 60 Year
  Sex: Female
  Weight: 75 kg

DRUGS (6)
  1. CYCLOPHOSPHAMIDE. [Suspect]
     Active Substance: CYCLOPHOSPHAMIDE
     Dates: end: 20150306
  2. RITUXIMAB (MOAB C2B8 ANTI CD20, CHIMERIC) [Suspect]
     Active Substance: RITUXIMAB
     Dates: end: 20150306
  3. COQ10 [Concomitant]
     Active Substance: UBIDECARENONE
  4. CHOLECALCIFIED VIT C [Concomitant]
  5. BIOTIN [Concomitant]
     Active Substance: BIOTIN
  6. FLUDARABINE PHOSPHATE. [Suspect]
     Active Substance: FLUDARABINE PHOSPHATE
     Dates: end: 20150306

REACTIONS (14)
  - Hypotension [None]
  - Respiratory failure [None]
  - Abdominal distension [None]
  - Haemoglobin decreased [None]
  - Neutrophil count decreased [None]
  - Septic shock [None]
  - Pyrexia [None]
  - Petechiae [None]
  - Lymphocyte count decreased [None]
  - Pancytopenia [None]
  - Somnolence [None]
  - Blood bilirubin increased [None]
  - Tachycardia [None]
  - Acidosis [None]

NARRATIVE: CASE EVENT DATE: 20160415
